FAERS Safety Report 7225843-0 (Version None)
Quarter: 2011Q1

REPORT INFORMATION
  Report Type: 
  Country: None (occurrence: None)
  Receive Date: 20110113
  Receipt Date: 20110106
  Transmission Date: 20110831
  Serious: Yes (Other)
  Sender: FDA-Public Use
  Company Number: US-AMGEN-USASP2011000981

PATIENT

DRUGS (2)
  1. PREVACID [Concomitant]
  2. PROLIA [Suspect]
     Indication: OSTEOPOROSIS POSTMENOPAUSAL
     Dates: start: 20101102

REACTIONS (6)
  - DANDRUFF [None]
  - BLOOD PRESSURE INCREASED [None]
  - FATIGUE [None]
  - GAIT DISTURBANCE [None]
  - DRY SKIN [None]
  - SKIN EXFOLIATION [None]
